FAERS Safety Report 20957584 (Version 1)
Quarter: 2022Q2

REPORT INFORMATION
  Report Type: Spontaneous
  Country: IT (occurrence: IT)
  Receive Date: 20220614
  Receipt Date: 20220614
  Transmission Date: 20220720
  Serious: Yes (Other)
  Sender: FDA-Public Use
  Company Number: None

PATIENT
  Age: 55 Year
  Sex: Female

DRUGS (1)
  1. IBUPROFEN [Suspect]
     Active Substance: IBUPROFEN
     Indication: COVID-19
     Dosage: 1800 MILLIGRAM, TOTAL
     Route: 048
     Dates: start: 20220323, end: 20220325

REACTIONS (2)
  - Melaena [Recovering/Resolving]
  - Off label use [Unknown]

NARRATIVE: CASE EVENT DATE: 20220325
